FAERS Safety Report 21747214 (Version 2)
Quarter: 2023Q2

REPORT INFORMATION
  Report Type: Report from Study
  Country: US (occurrence: US)
  Receive Date: 20221219
  Receipt Date: 20230518
  Transmission Date: 20230722
  Serious: Yes (Other)
  Sender: FDA-Public Use
  Company Number: US-TAKEDA-US202031750

PATIENT
  Sex: Female
  Weight: 86 kg

DRUGS (16)
  1. HUMAN IMMUNOGLOBULIN G [Suspect]
     Active Substance: HUMAN IMMUNOGLOBULIN G
     Indication: Primary immunodeficiency syndrome
     Dosage: 45 GRAM, Q4WEEKS
     Route: 065
     Dates: start: 202001
  2. HUMAN IMMUNOGLOBULIN G [Suspect]
     Active Substance: HUMAN IMMUNOGLOBULIN G
     Dosage: UNK
     Route: 042
  3. HUMAN IMMUNOGLOBULIN G [Suspect]
     Active Substance: HUMAN IMMUNOGLOBULIN G
     Dosage: 45 GRAM, Q4WEEKS
     Route: 065
  4. HUMAN IMMUNOGLOBULIN G [Suspect]
     Active Substance: HUMAN IMMUNOGLOBULIN G
     Dosage: 45 GRAM, Q4WEEKS
     Route: 065
  5. HUMAN IMMUNOGLOBULIN G [Suspect]
     Active Substance: HUMAN IMMUNOGLOBULIN G
     Dosage: 45 GRAM, Q4WEEKS
     Route: 065
  6. DEXILANT [Suspect]
     Active Substance: DEXLANSOPRAZOLE
     Indication: Product used for unknown indication
     Dosage: 30 MILLIGRAM, QD
     Route: 065
  7. CELEBREX [Concomitant]
     Active Substance: CELECOXIB
  8. ANASTROZOLE [Concomitant]
     Active Substance: ANASTROZOLE
  9. XYZAL [Concomitant]
     Active Substance: LEVOCETIRIZINE DIHYDROCHLORIDE
  10. BONIVA [Concomitant]
     Active Substance: IBANDRONATE SODIUM
  11. ALLEGRA [Concomitant]
     Active Substance: FEXOFENADINE HYDROCHLORIDE
  12. ALBUTEROL [Concomitant]
     Active Substance: ALBUTEROL
  13. BREZTRI [Concomitant]
     Active Substance: BUDESONIDE\FORMOTEROL\GLYCOPYRROLATE
  14. HORIZANT [Concomitant]
     Active Substance: GABAPENTIN ENACARBIL
  15. SYMBICORT [Concomitant]
     Active Substance: BUDESONIDE\FORMOTEROL FUMARATE DIHYDRATE
  16. XARELTO [Concomitant]
     Active Substance: RIVAROXABAN

REACTIONS (7)
  - Uveitis [Unknown]
  - Coagulopathy [Unknown]
  - Nasopharyngitis [Unknown]
  - Infusion related reaction [Unknown]
  - Eye disorder [Unknown]
  - Asthma [Unknown]
  - Chills [Unknown]
